FAERS Safety Report 23015722 (Version 1)
Quarter: 2023Q4

REPORT INFORMATION
  Report Type: Report from Study
  Country: DE (occurrence: DE)
  Receive Date: 20231002
  Receipt Date: 20231002
  Transmission Date: 20240110
  Serious: Yes (Hospitalization)
  Sender: FDA-Public Use
  Company Number: DE-002147023-PHHY2019DE051293

PATIENT
  Sex: Female
  Weight: 75.3 kg

DRUGS (15)
  1. LETROZOLE [Suspect]
     Active Substance: LETROZOLE
     Indication: Breast cancer
     Dosage: 2.5 MILLIGRAM, QD
     Route: 048
     Dates: start: 20190213
  2. KISQALI [Suspect]
     Active Substance: RIBOCICLIB
     Indication: Breast cancer metastatic
     Dosage: 600 MG,QD(ADMINISTRATION SCHEME 21 DAYS INTAKE)
     Route: 048
     Dates: start: 20190213, end: 20190312
  3. KISQALI [Suspect]
     Active Substance: RIBOCICLIB
     Dosage: 600 MG,QD(ADMINISTRATION SCHEME 21 DAYS INTAKE)
     Route: 048
     Dates: start: 20190313, end: 20190409
  4. KISQALI [Suspect]
     Active Substance: RIBOCICLIB
     Dosage: 600 MG,QD(ADMINISTRATION SCHEME 21 DAYS INTAKE)
     Route: 048
     Dates: start: 20190410, end: 20190507
  5. KISQALI [Suspect]
     Active Substance: RIBOCICLIB
     Dosage: 600 MG,QD(ADMINISTRATION SCHEME 21 DAYS INTAKE)
     Route: 048
     Dates: start: 20190508, end: 20190604
  6. KISQALI [Suspect]
     Active Substance: RIBOCICLIB
     Dosage: 600 MG,QD(ADMINISTRATION SCHEME 21 DAYS INTAKE)
     Route: 048
     Dates: start: 20190605, end: 20190702
  7. KISQALI [Suspect]
     Active Substance: RIBOCICLIB
     Dosage: 600 MG,QD(ADMINISTRATION SCHEME 21 DAYS INTAKE)
     Route: 048
     Dates: start: 20190703
  8. KISQALI [Suspect]
     Active Substance: RIBOCICLIB
     Dosage: 400 MG,QD(ADMINISTRATION SCHEME 21 DAYS INTAKE)
     Route: 048
     Dates: start: 20190805, end: 20190901
  9. KISQALI [Suspect]
     Active Substance: RIBOCICLIB
     Dosage: 400 MG,QD(ADMINISTRATION SCHEME 21 DAYS INTAKE)
     Route: 048
     Dates: start: 20190902, end: 20190929
  10. KISQALI [Suspect]
     Active Substance: RIBOCICLIB
     Dosage: 400 MG,QD(ADMINISTRATION SCHEME 21 DAYS INTAKE)
     Route: 048
     Dates: start: 20191007, end: 20191103
  11. KISQALI [Suspect]
     Active Substance: RIBOCICLIB
     Dosage: 400 MG,QD(21 DAYS INTAKE,7 DAYS PAUSE)
     Route: 048
     Dates: start: 20191211, end: 20200107
  12. KISQALI [Suspect]
     Active Substance: RIBOCICLIB
     Dosage: 400 MG,QD(21 DAYS INTAKE,7 DAYS PAUSE)
     Route: 048
     Dates: start: 20200108, end: 20200204
  13. KISQALI [Suspect]
     Active Substance: RIBOCICLIB
     Dosage: 400 MG,QD(ADMINISTRATION SCHEME 21 DAYS INTAKE)
     Route: 048
     Dates: start: 20200205, end: 20200303
  14. KISQALI [Suspect]
     Active Substance: RIBOCICLIB
     Dosage: 400 MG,QD(DAILY DOSE)(SCHEMA 21 DAYS INTAKE)
     Route: 048
     Dates: start: 20200304, end: 20200720
  15. KISQALI [Suspect]
     Active Substance: RIBOCICLIB
     Dosage: 400 MG,QD(DAILY DOSE)(SCHEMA 21 DAYS INTAKE)
     Route: 048
     Dates: start: 20200804

REACTIONS (6)
  - Depression [Not Recovered/Not Resolved]
  - Lacrimation increased [Recovered/Resolved]
  - Platelet count decreased [Recovered/Resolved]
  - Diarrhoea [Recovered/Resolved]
  - Fatigue [Not Recovered/Not Resolved]
  - Nausea [Recovered/Resolved]

NARRATIVE: CASE EVENT DATE: 20190226
